FAERS Safety Report 4790445-2 (Version None)
Quarter: 2005Q4

REPORT INFORMATION
  Report Type: 
  Country: None (occurrence: None)
  Receive Date: 20051005
  Receipt Date: 20050922
  Transmission Date: 20060501
  Serious: Yes (Hospitalization, Other)
  Sender: FDA-Public Use
  Company Number: 2005AP000738

PATIENT
  Age: 54 Year
  Sex: Female
  Weight: 182.4 kg

DRUGS (5)
  1. OXAPROZIN [Suspect]
     Indication: DRUG USE FOR UNKNOWN INDICATION
  2. FUROSEMIDE [Suspect]
  3. SPIRONOLACTONE [Suspect]
  4. ALLOPURINOL [Suspect]
  5. GLYCERYL TRINITRATE [Concomitant]

REACTIONS (6)
  - BLOOD GLUCOSE INCREASED [None]
  - BLOOD PRESSURE DECREASED [None]
  - OEDEMA PERIPHERAL [None]
  - PULMONARY EMBOLISM [None]
  - SKIN ULCER [None]
  - TACHYCARDIA [None]
